FAERS Safety Report 4682082-5 (Version None)
Quarter: 2005Q2

REPORT INFORMATION
  Report Type: 
  Country: None (occurrence: None)
  Receive Date: 20050602
  Receipt Date: 20040831
  Transmission Date: 20051028
  Serious: Yes (Other)
  Sender: FDA-Public Use
  Company Number: 379218

PATIENT
  Age: 35 Year
  Sex: Male
  Weight: 72.6 kg

DRUGS (1)
  1. LARIAM [Suspect]
     Indication: MALARIA PROPHYLAXIS
     Dosage: ORAL
     Route: 048
     Dates: start: 19981115, end: 19981115

REACTIONS (1)
  - GRAND MAL CONVULSION [None]
